FAERS Safety Report 11993560 (Version 4)
Quarter: 2016Q1

REPORT INFORMATION
  Report Type: Spontaneous
  Country: US (occurrence: US)
  Receive Date: 20160203
  Receipt Date: 20160301
  Transmission Date: 20160526
  Serious: Yes (Other)
  Sender: FDA-Public Use
  Company Number: US-PFIZER INC-2016007233

PATIENT
  Age: 39 Year
  Sex: Male
  Weight: 132 kg

DRUGS (19)
  1. NEURONTIN [Concomitant]
     Active Substance: GABAPENTIN
     Dosage: 300 MG, 3X/DAY
     Route: 048
     Dates: start: 20151216
  2. TENORMIN [Concomitant]
     Active Substance: ATENOLOL
     Dosage: 100 MG, DAILY
     Route: 048
  3. PAXIL [Concomitant]
     Active Substance: PAROXETINE HYDROCHLORIDE
     Dosage: 60 MG, DAILY
     Route: 048
  4. HUMULIN R [Concomitant]
     Active Substance: INSULIN HUMAN
     Dosage: UNK
  5. GLUCOPHAGE [Concomitant]
     Active Substance: METFORMIN HYDROCHLORIDE
     Dosage: 500 MG, 2X/DAY (WITH MEALS)
     Route: 048
     Dates: start: 20151216
  6. VISTARIL [Concomitant]
     Active Substance: HYDROXYZINE PAMOATE
     Indication: PRURITUS
  7. TOUJEO [Concomitant]
     Active Substance: INSULIN GLARGINE
     Dosage: 50 IU, DAILY (BEFORE SUPPER)
     Route: 058
     Dates: start: 20151216
  8. PERCOCET [Concomitant]
     Active Substance: ACETAMINOPHEN\OXYCODONE HYDROCHLORIDE
     Indication: PAIN
     Dosage: UNK, AS NEEDED (OXYCODONE HYDROCHLORIDE 5 MG, PARACETAMOL 325 MG)  (EVERY 4 HOURS)
     Route: 048
     Dates: start: 20151220
  9. SUTENT [Suspect]
     Active Substance: SUNITINIB MALATE
     Indication: METASTATIC RENAL CELL CARCINOMA
     Dosage: 50 MG, CYCLIC (28 DAYS ON/14 DAYS OFF)
     Route: 048
     Dates: start: 20160118, end: 20160127
  10. ACTOS [Concomitant]
     Active Substance: PIOGLITAZONE HYDROCHLORIDE
     Dosage: 30 MG, DAILY (WITH BREAKFAST)
     Route: 048
     Dates: start: 20151216
  11. NOVOLIN R [Concomitant]
     Active Substance: INSULIN HUMAN
     Dosage: 30 IU, 3X/DAY (WITH MEALS)
     Route: 058
  12. NORCO [Concomitant]
     Active Substance: ACETAMINOPHEN\HYDROCODONE BITARTRATE
     Indication: PAIN
     Dosage: 1 DF AS NEEDED (HYDROCODONE BITARTRATE 10 MG, PARACETAMOL 325MG) (1 TABLET BY MOUTH EVERY 6 HRS
     Route: 048
     Dates: start: 20151128
  13. NORCO [Concomitant]
     Active Substance: ACETAMINOPHEN\HYDROCODONE BITARTRATE
     Indication: BREAKTHROUGH PAIN
  14. DESYREL [Concomitant]
     Active Substance: TRAZODONE HYDROCHLORIDE
     Dosage: 100 MG, DAILY (AT BEDTIME)
     Route: 048
  15. AMARYL [Concomitant]
     Active Substance: GLIMEPIRIDE
     Dosage: 4 MG, 2X/DAY (WITH MEALS)
     Route: 048
     Dates: start: 20151216
  16. XANAX [Concomitant]
     Active Substance: ALPRAZOLAM
     Dosage: 1 MG, 2X/DAY
     Route: 048
  17. SUTENT [Suspect]
     Active Substance: SUNITINIB MALATE
     Dosage: 50 MG, CYCLIC (28 DAYS ON/14 DAYS OFF)
     Route: 048
     Dates: start: 20160203
  18. DUONEB [Concomitant]
     Active Substance: ALBUTEROL SULFATE\IPRATROPIUM BROMIDE
     Dosage: 0.5 MG-3MG (2.5 MG BASE)/ 3ML SOLUTION FOR NEBULIZATION (EVERY 6 HOURS)
     Route: 055
     Dates: start: 20151128
  19. VISTARIL [Concomitant]
     Active Substance: HYDROXYZINE PAMOATE
     Indication: ANXIETY
     Dosage: 50 MG, 4X/DAY (AS NEEDED)
     Route: 048

REACTIONS (8)
  - Pancreatitis [Unknown]
  - Pain [Unknown]
  - Retching [Unknown]
  - Decreased appetite [Unknown]
  - Abdominal pain upper [Not Recovered/Not Resolved]
  - Pancreatic enzymes increased [Unknown]
  - Malaise [Unknown]
  - Hypertension [Not Recovered/Not Resolved]

NARRATIVE: CASE EVENT DATE: 2016
